FAERS Safety Report 5670057-9 (Version None)
Quarter: 2008Q1

REPORT INFORMATION
  Report Type: 
  Country: None (occurrence: None)
  Receive Date: 20080317
  Receipt Date: 20080310
  Transmission Date: 20080703
  Serious: Yes (Other)
  Sender: FDA-Public Use
  Company Number: GB-MERCK-0803GBR00045

PATIENT
  Age: 10 Year
  Sex: Male
  Weight: 26 kg

DRUGS (4)
  1. SINGULAIR [Suspect]
     Route: 048
     Dates: start: 20080125, end: 20080206
  2. PREDNISOLONE [Concomitant]
     Indication: ASTHMA
     Route: 048
     Dates: start: 20080111, end: 20080124
  3. ALBUTEROL [Concomitant]
     Indication: ASTHMA
     Dates: start: 20000101
  4. FLUTICASONE PROPIONATE AND SALMETEROL XINAFOATE [Concomitant]
     Indication: ASTHMA
     Dates: start: 20020101

REACTIONS (2)
  - EPISTAXIS [None]
  - PETECHIAE [None]
